FAERS Safety Report 4646185-3 (Version None)
Quarter: 2005Q2

REPORT INFORMATION
  Report Type: 
  Country: None (occurrence: None)
  Receive Date: 20050427
  Receipt Date: 20050316
  Transmission Date: 20051028
  Serious: Yes (Death, Other)
  Sender: FDA-Public Use
  Company Number: PHBS2005JP03880

PATIENT
  Age: 2 Year
  Sex: Male

DRUGS (4)
  1. STEROIDS NOS [Suspect]
     Indication: APLASTIC ANAEMIA
     Route: 065
  2. ATGAM [Suspect]
     Indication: APLASTIC ANAEMIA
     Dosage: 15 MG/KG/DAY
     Route: 065
     Dates: start: 20040613, end: 20040617
  3. NEORAL [Suspect]
     Indication: APLASTIC ANAEMIA
     Dosage: 6 MG/KG/DAY
     Route: 065
     Dates: start: 20040602
  4. PLATELETS [Concomitant]

REACTIONS (9)
  - BLOOD BETA-D-GLUCAN INCREASED [None]
  - CHEST X-RAY ABNORMAL [None]
  - COUGH [None]
  - EPSTEIN-BARR VIRUS INFECTION [None]
  - LYMPHOPROLIFERATIVE DISORDER [None]
  - PNEUMOCYSTIS JIROVECI PNEUMONIA [None]
  - PYREXIA [None]
  - RESPIRATORY FAILURE [None]
  - SERUM SICKNESS [None]
